FAERS Safety Report 19685644 (Version 1)
Quarter: 2021Q3

REPORT INFORMATION
  Report Type: Other
  Country: IT (occurrence: IT)
  Receive Date: 20210811
  Receipt Date: 20210811
  Transmission Date: 20211014
  Serious: Yes (Death, Life-Threatening)
  Sender: FDA-Public Use
  Company Number: IT-NOSTRUM LABORATORIES, INC.-2114888

PATIENT
  Age: 84 Year
  Sex: Female

DRUGS (2)
  1. PROPOFOL. [Suspect]
     Active Substance: PROPOFOL
     Route: 040
  2. MORPHINE SULFATE. [Suspect]
     Active Substance: MORPHINE SULFATE
     Indication: DEATH
     Route: 040

REACTIONS (2)
  - Cardio-respiratory arrest [Fatal]
  - Syncope [Fatal]
